FAERS Safety Report 4400719-2 (Version None)
Quarter: 2004Q3

REPORT INFORMATION
  Report Type: 
  Country: None (occurrence: None)
  Receive Date: 20040714
  Receipt Date: 20040628
  Transmission Date: 20050211
  Serious: Yes (Hospitalization)
  Sender: FDA-Public Use
  Company Number: 2004-BP-04971NB(1)

PATIENT
  Age: 44 Year
  Sex: Male

DRUGS (8)
  1. MICARDIS [Suspect]
     Dosage: 80 MG
     Route: 048
     Dates: start: 20040122, end: 20040412
  2. LIPITOR [Suspect]
     Dosage: 5 MG
     Route: 048
     Dates: start: 20040122, end: 20040412
  3. NORVASC [Concomitant]
  4. ENALAPRIL MALEATE [Concomitant]
  5. SINLESTAL (PROBUCOL) [Concomitant]
  6. LASIX (CALCIUM POLYSTYRENE SULFONATE) [Concomitant]
  7. KALIMATE (CALCIUM POLYSTYRENE SULFONATE) [Concomitant]
  8. DOXAZOSIN MESYLATE [Concomitant]

REACTIONS (4)
  - DIABETIC NEUROPATHY [None]
  - DIALYSIS [None]
  - DISEASE PROGRESSION [None]
  - RENAL FAILURE [None]
